FAERS Safety Report 6430293-0 (Version None)
Quarter: 2009Q4

REPORT INFORMATION
  Report Type: 
  Country: None (occurrence: None)
  Receive Date: 20091106
  Receipt Date: 20091027
  Transmission Date: 20100525
  Serious: No
  Sender: FDA-Public Use
  Company Number: US-B.I. PHARMACEUTICALS,INC./RIDGEFIELD-2009-BP-12663BP

PATIENT
  Sex: Female

DRUGS (5)
  1. ZANTAC 150 [Suspect]
     Indication: DYSPEPSIA
     Dosage: 150 MG
     Route: 048
     Dates: start: 20030101
  2. ATENOLOL [Concomitant]
     Indication: CARDIAC DISORDER
     Dates: start: 19950101
  3. PRILOSEC [Concomitant]
     Indication: DYSPEPSIA
  4. PROTONIX [Concomitant]
     Indication: DYSPEPSIA
  5. COZAAR [Concomitant]
     Dates: start: 20090101

REACTIONS (2)
  - DYSPEPSIA [None]
  - LUNG DISORDER [None]
